FAERS Safety Report 15117408 (Version 1)
Quarter: 2018Q3

REPORT INFORMATION
  Report Type: Spontaneous
  Country: IN (occurrence: IN)
  Receive Date: 20180706
  Receipt Date: 20180706
  Transmission Date: 20181010
  Serious: Yes (Hospitalization)
  Sender: FDA-Public Use
  Company Number: IN-MYLANLABS-2018M1048389

PATIENT
  Age: 18 Year
  Sex: Female

DRUGS (2)
  1. TRETINOIN. [Suspect]
     Active Substance: TRETINOIN
     Indication: ACUTE PROMYELOCYTIC LEUKAEMIA
     Dosage: 45 MG/M2
     Route: 065
  2. ARSENIC TRIOXIDE [Suspect]
     Active Substance: ARSENIC TRIOXIDE
     Indication: ACUTE PROMYELOCYTIC LEUKAEMIA
     Route: 065

REACTIONS (6)
  - Respiratory distress [Recovering/Resolving]
  - Weight increased [Recovering/Resolving]
  - Pancreatitis acute [Recovering/Resolving]
  - Acute promyelocytic leukaemia differentiation syndrome [Recovering/Resolving]
  - Oedematous pancreatitis [Recovering/Resolving]
  - Pleural effusion [Recovering/Resolving]
